FAERS Safety Report 4416904-X (Version None)
Quarter: 2004Q3

REPORT INFORMATION
  Report Type: 
  Country: None (occurrence: None)
  Receive Date: 20040804
  Receipt Date: 20040804
  Transmission Date: 20050211
  Serious: No
  Sender: FDA-Public Use
  Company Number: None

PATIENT
  Sex: Female
  Weight: 52.1637 kg

DRUGS (2)
  1. SEPTACAINE [Suspect]
     Indication: DENTAL TREATMENT
     Dosage: INTRA CORPUS
     Route: 011
     Dates: start: 20040616, end: 20040616
  2. SEPTACAINE [Suspect]
     Indication: NERVE BLOCK
     Dosage: INTRA CORPUS
     Route: 011
     Dates: start: 20040616, end: 20040616

REACTIONS (3)
  - HYPOAESTHESIA ORAL [None]
  - SWELLING FACE [None]
  - SWOLLEN TONGUE [None]
